FAERS Safety Report 23465997 (Version 2)
Quarter: 2024Q1

REPORT INFORMATION
  Report Type: Spontaneous
  Country: GB (occurrence: GB)
  Receive Date: 20240201
  Receipt Date: 20240220
  Transmission Date: 20240410
  Serious: Yes (Other)
  Sender: FDA-Public Use
  Company Number: None

PATIENT
  Age: 46 Year
  Sex: Female

DRUGS (1)
  1. SULFASALAZINE [Suspect]
     Active Substance: SULFASALAZINE
     Indication: Arthritis
     Dosage: ONE TABLET TWICE PER DAY
     Dates: start: 20231120, end: 20231205

REACTIONS (14)
  - Rash [Recovered/Resolved with Sequelae]
  - Limbal swelling [Recovered/Resolved]
  - Lymphadenopathy [Recovered/Resolved]
  - Pyrexia [Recovered/Resolved]
  - Mood altered [Recovered/Resolved]
  - Antinuclear antibody positive [Not Recovered/Not Resolved]
  - Arthralgia [Recovered/Resolved]
  - Headache [Unknown]
  - Palpitations [Unknown]
  - Anxiety [Unknown]
  - Stress [Unknown]
  - Raynaud^s phenomenon [Not Recovered/Not Resolved]
  - Pain in extremity [Unknown]
  - Emotional distress [Unknown]

NARRATIVE: CASE EVENT DATE: 20231121
